FAERS Safety Report 23772562 (Version 1)
Quarter: 2024Q2

REPORT INFORMATION
  Report Type: Spontaneous
  Country: GB (occurrence: GB)
  Receive Date: 20240423
  Receipt Date: 20240423
  Transmission Date: 20240716
  Serious: Yes (Other)
  Sender: FDA-Public Use
  Company Number: None

PATIENT
  Age: 82 Year
  Sex: Female
  Weight: 48 kg

DRUGS (23)
  1. AZITHROMYCIN [Suspect]
     Active Substance: AZITHROMYCIN
     Indication: Product used for unknown indication
     Dosage: 250 MILLIGRAM, 3XW (ONE TO BE TAKEN EVERY MONDAY, WEDNESDAY + FRIDAY)
     Route: 065
     Dates: start: 20240105
  2. AMITRIPTYLINE HYDROCHLORIDE [Concomitant]
     Active Substance: AMITRIPTYLINE HYDROCHLORIDE
     Dosage: 1 DOSAGE FORM, QD (EACH NIGHT)
     Route: 065
     Dates: start: 20231220
  3. ATORVASTATIN [Concomitant]
     Active Substance: ATORVASTATIN
     Dosage: 1 DOSAGE FORM, QD (EACH NIGHT)
     Route: 065
     Dates: start: 20231220, end: 20240408
  4. CARBOCYSTEINE [Concomitant]
     Active Substance: CARBOCYSTEINE
     Dosage: 2 DOSAGE FORM, TID (REVIEW IN 8 WEEKS)
     Route: 065
     Dates: start: 20240227
  5. CHLORAMPHENICOL [Concomitant]
     Active Substance: CHLORAMPHENICOL
     Dosage: 2 DOSAGE FORM (PUT ONE DROP INTO THE AFFECTED EYE(S) EVERY 2 H)
     Route: 031
     Dates: start: 20240404
  6. CHLORHEXIDINE GLUCONATE [Concomitant]
     Active Substance: CHLORHEXIDINE GLUCONATE
     Dosage: RINSE THE MOUTH WITH 10ML FOR ABOUT 1 MINUTE TW...
     Route: 048
     Dates: start: 20240110, end: 20240125
  7. CIPROFLOXACIN [Concomitant]
     Active Substance: CIPROFLOXACIN
     Dosage: 1 DOSAGE FORM, BID (FOR TWO WEEKS)
     Route: 065
     Dates: start: 20240304, end: 20240318
  8. CLOPIDOGREL [Concomitant]
     Active Substance: CLOPIDOGREL BISULFATE
     Dosage: 1 DOSAGE FORM, QD (EACH MORNING AFTER FOOD )
     Route: 065
     Dates: start: 20231220
  9. COLISTIMETHATE [Concomitant]
     Active Substance: COLISTIMETHATE SODIUM
     Dosage: UNK UNK, BID (FOR NEBULISATION TWICE DAILY AS DIRECTED)
     Route: 055
     Dates: start: 20240304, end: 20240403
  10. Colomycin [Concomitant]
     Dosage: UNK (USE AS DIRECTED)
     Route: 065
     Dates: start: 20240228, end: 20240229
  11. FERROUS SULFATE [Concomitant]
     Active Substance: FERROUS SULFATE
     Dosage: 1 DOSAGE FORM, QD (AFTER FOOD)
     Route: 065
     Dates: start: 20240402
  12. BECLOMETHASONE\FORMOTEROL [Concomitant]
     Active Substance: BECLOMETHASONE\FORMOTEROL
     Dosage: 2 DOSAGE FORM, BID
     Route: 055
     Dates: start: 20231219
  13. GABAPENTIN [Concomitant]
     Active Substance: GABAPENTIN
     Dosage: 1 DOSAGE FORM, TID
     Route: 065
     Dates: start: 20231220
  14. Hydromol [Concomitant]
     Dosage: UNK (APPLY TO SKIN FREQUENTLY AND LIBERALLY, AS OFTE)
     Route: 061
     Dates: start: 20230719
  15. LACTULOSE [Concomitant]
     Active Substance: LACTULOSE
     Dosage: 2 DOSAGE FORM (AS NECESSARY)
     Route: 065
     Dates: start: 20240403
  16. LANSOPRAZOLE [Concomitant]
     Active Substance: LANSOPRAZOLE
     Dosage: 1 DOSAGE FORM, QD ( EVERY MORNING)
     Route: 065
     Dates: start: 20231220
  17. POLYETHYLENE GLYCOL 3350\POTASSIUM CHLORIDE\SODIUM BICARBONATE\SODIUM [Concomitant]
     Active Substance: POLYETHYLENE GLYCOL 3350\POTASSIUM CHLORIDE\SODIUM BICARBONATE\SODIUM CHLORIDE
     Dosage: UNK (TAKE ONE TO TWO SACHETS DISSOLVED IN WATER DAIL.)
     Route: 065
     Dates: start: 20231005
  18. MOMETASONE [Concomitant]
     Active Substance: MOMETASONE
     Dosage: 2 DOSAGE FORM, BID (IN EACH NOSTRIL. ONCE SYMP..)
     Route: 045
     Dates: start: 20231124
  19. MONTELUKAST [Concomitant]
     Active Substance: MONTELUKAST SODIUM
     Dosage: 1 DOSAGE FORM, QD (EACH EVENING)
     Route: 065
     Dates: start: 20231220
  20. ACETAMINOPHEN [Concomitant]
     Active Substance: ACETAMINOPHEN
     Dosage: UNK (TAKE 1 OR 2 TABLETS EVERY 4 TO 6 HOURS WHEN REQ.)
     Route: 065
     Dates: start: 20240404
  21. ALBUTEROL [Concomitant]
     Active Substance: ALBUTEROL
     Dosage: 1 OR 2 PUFFS AS A SINGLE DOSE. CAN BE REPEATED ...
     Route: 065
     Dates: start: 20240304, end: 20240401
  22. SODIUM CHLORIDE [Concomitant]
     Active Substance: SODIUM CHLORIDE
     Dosage: USE 2 VIALS (5MLS) FOR DILUTION OF NEBULISTION AS DIRECTED
     Route: 055
     Dates: start: 20240304, end: 20240403
  23. SPIRIVA [Concomitant]
     Active Substance: TIOTROPIUM BROMIDE MONOHYDRATE
     Dosage: 2 DOSAGE FORM, QD (5 MICROGR...)
     Route: 055
     Dates: start: 20230504

REACTIONS (1)
  - Lip swelling [Recovering/Resolving]
